FAERS Safety Report 4549204-8 (Version None)
Quarter: 2005Q1

REPORT INFORMATION
  Report Type: 
  Country: None (occurrence: None)
  Receive Date: 20050107
  Receipt Date: 20050107
  Transmission Date: 20050727
  Serious: Yes (Hospitalization, Disabling, Congenital Anomaly)
  Sender: FDA-Public Use
  Company Number: None

PATIENT
  Age: 34 Year
  Sex: Male
  Weight: 81.6475 kg

DRUGS (1)
  1. ZICAM COLD REMEDY NASAL PUMP [Suspect]
     Indication: ANOSMIA
     Dosage: 1 PUMP ONCE NASAL
     Route: 045
     Dates: start: 20041210, end: 20041213

REACTIONS (6)
  - AGEUSIA [None]
  - ANOSMIA [None]
  - BURNING SENSATION [None]
  - FEELING ABNORMAL [None]
  - NASAL DISCOMFORT [None]
  - NERVE INJURY [None]
